FAERS Safety Report 11772270 (Version 1)
Quarter: 2015Q4

REPORT INFORMATION
  Report Type: Spontaneous
  Country: CA (occurrence: CA)
  Receive Date: 20151124
  Receipt Date: 20151124
  Transmission Date: 20160304
  Serious: Yes (Other)
  Sender: FDA-Public Use
  Company Number: CA-TEVA-610784ACC

PATIENT
  Age: 49 Year
  Sex: Female
  Weight: 68 kg

DRUGS (1)
  1. NOVO-CLOXIN CAP 500MG [Suspect]
     Active Substance: CLOXACILLIN
     Indication: BACTERIAL INFECTION
     Route: 048

REACTIONS (3)
  - Dysphagia [Not Recovered/Not Resolved]
  - Throat irritation [Not Recovered/Not Resolved]
  - Pharyngeal oedema [Not Recovered/Not Resolved]
